FAERS Safety Report 23458079 (Version 1)
Quarter: 2024Q1

REPORT INFORMATION
  Report Type: Spontaneous
  Country: US (occurrence: None)
  Receive Date: 20240130
  Receipt Date: 20240130
  Transmission Date: 20240409
  Serious: Yes (Other)
  Sender: FDA-Public Use
  Company Number: US-ROCHE-3495170

PATIENT
  Age: 74 Year
  Sex: Male
  Weight: 75.9 kg

DRUGS (7)
  1. ACTEMRA [Suspect]
     Active Substance: TOCILIZUMAB
     Indication: Product used for unknown indication
     Route: 042
     Dates: start: 20240114
  2. MINOCYCLINE [Concomitant]
     Active Substance: MINOCYCLINE HYDROCHLORIDE
  3. TAMIFLU [Concomitant]
     Active Substance: OSELTAMIVIR PHOSPHATE
     Route: 048
  4. ACYCLOVIR [Concomitant]
     Active Substance: ACYCLOVIR
     Route: 042
  5. DEXAMETHASONE [Concomitant]
     Active Substance: DEXAMETHASONE
     Route: 042
  6. ACALABRUTINIB [Concomitant]
     Active Substance: ACALABRUTINIB
  7. OSELTAMIVIR [Concomitant]
     Active Substance: OSELTAMIVIR

REACTIONS (3)
  - Acute kidney injury [Unknown]
  - Platelet count decreased [Unknown]
  - Epstein-Barr viraemia [Unknown]

NARRATIVE: CASE EVENT DATE: 20240116
